FAERS Safety Report 8121300-8 (Version None)
Quarter: 2012Q1

REPORT INFORMATION
  Report Type: 
  Country: None (occurrence: None)
  Receive Date: 20120203
  Receipt Date: 20120125
  Transmission Date: 20120608
  Serious: Yes (Other)
  Sender: FDA-Public Use
  Company Number: 2011AP002138

PATIENT
  Age: 22 Year
  Sex: Female

DRUGS (2)
  1. CETIRIZINE [Suspect]
     Indication: ALLERGIC SINUSITIS
     Dosage: 10 MG, QD
     Dates: start: 20100501
  2. PYRIDOSTIGMINE BROMIDE [Concomitant]

REACTIONS (2)
  - MYASTHENIA GRAVIS [None]
  - CONDITION AGGRAVATED [None]
